FAERS Safety Report 8157704-7 (Version None)
Quarter: 2012Q1

REPORT INFORMATION
  Report Type: 
  Country: None (occurrence: None)
  Receive Date: 20120222
  Receipt Date: 20090626
  Transmission Date: 20120608
  Serious: Yes (Other)
  Sender: FDA-Public Use
  Company Number: US-BAYER-200924396NA

PATIENT
  Age: 48 Year
  Sex: Male
  Weight: 84 kg

DRUGS (19)
  1. SUCCINYLCHOLINE CHLORIDE [Concomitant]
     Dosage: UNK
     Route: 042
     Dates: start: 20060831
  2. HEPARIN [Concomitant]
     Dosage: 5000 UNITS
     Route: 042
     Dates: start: 20060831, end: 20060831
  3. HEPARIN [Concomitant]
     Dosage: 30,000 UNITS
     Route: 042
     Dates: start: 20060831, end: 20060831
  4. VANCOMYCIN [Concomitant]
     Route: 048
  5. ACETYLSALICYLIC ACID SRT [Concomitant]
     Dosage: 81 G, QD
     Route: 048
  6. CLONOPIN [Concomitant]
     Route: 048
  7. PANCURONIUM BROMIDE [Concomitant]
     Dosage: UNK
     Route: 042
     Dates: start: 20060831
  8. TRASYLOL [Suspect]
     Indication: CORONARY ARTERY BYPASS
     Dosage: 200CC
     Route: 042
     Dates: start: 20060831, end: 20060831
  9. TOPROL-XL [Concomitant]
     Dosage: 50 MG, QD
     Route: 048
  10. VERSED [Concomitant]
     Dosage: 15 MG, UNK
     Route: 042
     Dates: start: 20060831, end: 20060831
  11. FENTANYL [Concomitant]
     Dosage: UNK
     Route: 042
     Dates: start: 20060831
  12. TRASYLOL [Suspect]
     Dosage: 50CC/HR, INFUSION
     Route: 042
     Dates: start: 20060831, end: 20060831
  13. ETOMIDATE [Concomitant]
     Dosage: 20
     Route: 042
     Dates: start: 20060831, end: 20060831
  14. PEPCID [Concomitant]
     Route: 048
  15. PROTAMINE SULFATE [Concomitant]
     Route: 048
  16. REGLAN [Concomitant]
     Route: 048
  17. NITROGLYCERIN [Concomitant]
     Route: 048
  18. BENADRYL ALLERGY [DIPHENHYDRAMINE HYDROCHLORIDE] [Concomitant]
     Route: 048
  19. CEFUROXIME [Concomitant]
     Dosage: 1.5 G, UNK
     Route: 042
     Dates: start: 20060831, end: 20060831

REACTIONS (11)
  - FEAR [None]
  - EMOTIONAL DISTRESS [None]
  - ANXIETY [None]
  - RENAL INJURY [None]
  - STRESS [None]
  - UNEVALUABLE EVENT [None]
  - RENAL IMPAIRMENT [None]
  - INJURY [None]
  - PAIN [None]
  - RENAL FAILURE [None]
  - ANHEDONIA [None]
